FAERS Safety Report 11139415 (Version 1)
Quarter: 2015Q2

REPORT INFORMATION
  Report Type: Spontaneous
  Country: US (occurrence: None)
  Receive Date: 20150526
  Receipt Date: 20150526
  Transmission Date: 20150821
  Serious: No
  Sender: FDA-Public Use
  Company Number: None

PATIENT
  Age: 64 Year
  Sex: Male
  Weight: 92.99 kg

DRUGS (5)
  1. FLUVOXAMINE AMLEATE [Concomitant]
  2. SIMVASTATIN. [Concomitant]
     Active Substance: SIMVASTATIN
  3. ACETAMINOPHEN. [Concomitant]
     Active Substance: ACETAMINOPHEN
  4. PNEOMOVAX 23 VIAL [Concomitant]
  5. OLANZAPINE. [Suspect]
     Active Substance: OLANZAPINE
     Indication: SCHIZOPHRENIA, PARANOID TYPE
     Dosage: 20 MG, 1 TABLET, PO QD
     Route: 048

REACTIONS (3)
  - Abnormal behaviour [None]
  - Product formulation issue [None]
  - Agitation [None]

NARRATIVE: CASE EVENT DATE: 20150522
